FAERS Safety Report 13348905 (Version 1)
Quarter: 2017Q1

REPORT INFORMATION
  Report Type: Spontaneous
  Country: FI (occurrence: FI)
  Receive Date: 20170320
  Receipt Date: 20170320
  Transmission Date: 20170428
  Serious: Yes (Other)
  Sender: FDA-Public Use
  Company Number: FI-UCBSA-2016039017

PATIENT
  Age: 33 Year
  Sex: Female
  Weight: 111 kg

DRUGS (8)
  1. CIMZIA [Suspect]
     Active Substance: CERTOLIZUMAB PEGOL
     Dosage: 200 MG, EV 2 WEEKS(QOW)
     Dates: start: 201610, end: 20161121
  2. OXIKLORIN [Concomitant]
     Active Substance: HYDROXYCHLOROQUINE SULFATE
     Indication: RHEUMATOID ARTHRITIS
     Dosage: UNK
     Dates: start: 2010
  3. SALAZOPYRIN [Concomitant]
     Active Substance: SULFASALAZINE
     Indication: RHEUMATOID ARTHRITIS
     Dosage: UNK
     Dates: start: 2010
  4. LEDERSPAN [Concomitant]
     Active Substance: TRIAMCINOLONE HEXACETONIDE
     Indication: JOINT SWELLING
     Dosage: 1 ML
  5. LIDOCAIN [Concomitant]
     Active Substance: LIDOCAINE
     Indication: JOINT SWELLING
     Dosage: DOSE: 1 ML
  6. CIMZIA [Suspect]
     Active Substance: CERTOLIZUMAB PEGOL
     Indication: RHEUMATOID ARTHRITIS
     Dosage: 400 MG, EV 2 WEEKS(QOW)
     Dates: start: 20160907, end: 201609
  7. PREDNISOLON [Concomitant]
     Active Substance: PREDNISOLONE
     Indication: PRODUCT USED FOR UNKNOWN INDICATION
     Dosage: 5 MG, ONCE DAILY (QD)
     Dates: start: 2016
  8. FOLIVER [Concomitant]
     Indication: SUPPLEMENTATION THERAPY
     Dosage: 1 MG
     Dates: start: 20160805

REACTIONS (6)
  - Rash pruritic [Recovered/Resolved]
  - Papule [Unknown]
  - Stomatitis [Unknown]
  - Exposure during pregnancy [Unknown]
  - Blister [Not Recovered/Not Resolved]
  - Off label use [Unknown]

NARRATIVE: CASE EVENT DATE: 201609
